FAERS Safety Report 10669788 (Version 2)
Quarter: 2014Q4

REPORT INFORMATION
  Report Type: Spontaneous
  Country: US (occurrence: US)
  Receive Date: 20141222
  Receipt Date: 20141222
  Transmission Date: 20150529
  Serious: No
  Sender: FDA-Public Use
  Company Number: US-GLAXOSMITHKLINE-A1077317A

PATIENT

DRUGS (3)
  1. TESTOSTERONE. [Suspect]
     Active Substance: TESTOSTERONE
  2. AVODART [Suspect]
     Active Substance: DUTASTERIDE
     Indication: ALOPECIA
     Route: 048
     Dates: start: 20140609, end: 20140615
  3. AVODART [Suspect]
     Active Substance: DUTASTERIDE
     Indication: ACNE

REACTIONS (9)
  - Drug effect decreased [Unknown]
  - Therapeutic response unexpected [Not Recovered/Not Resolved]
  - Off label use [Unknown]
  - Muscle atrophy [Unknown]
  - Libido decreased [Unknown]
  - Muscle twitching [Unknown]
  - Adverse event [Unknown]
  - Exercise tolerance decreased [Unknown]
  - Dysgeusia [Unknown]

NARRATIVE: CASE EVENT DATE: 20140615
